FAERS Safety Report 17430766 (Version 1)
Quarter: 2020Q1

REPORT INFORMATION
  Report Type: Spontaneous
  Country: US (occurrence: US)
  Receive Date: 20200217
  Receipt Date: 20200217
  Transmission Date: 20200409
  Serious: Yes (Disabling)
  Sender: FDA-Public Use
  Company Number: None

PATIENT
  Age: 53 Year
  Sex: Female
  Weight: 67.05 kg

DRUGS (11)
  1. TAMSULOSIN  0.4MG [Suspect]
     Active Substance: TAMSULOSIN
     Indication: NEPHROLITHIASIS
     Dosage: ?          QUANTITY:1 CAPSULE(S);?
     Route: 048
     Dates: start: 20200203, end: 20200212
  2. GABAPENTIN. [Concomitant]
     Active Substance: GABAPENTIN
  3. LOVASTATIN. [Concomitant]
     Active Substance: LOVASTATIN
  4. VITAMIN D3 [Concomitant]
     Active Substance: CHOLECALCIFEROL
  5. VITAMIN B12 [Concomitant]
     Active Substance: CYANOCOBALAMIN
  6. LEVOTHYROXINE. [Concomitant]
     Active Substance: LEVOTHYROXINE
  7. TIZANIDINE. [Concomitant]
     Active Substance: TIZANIDINE
  8. MULTI-VITAMIN FOR WOMEN 50+ [Concomitant]
  9. MORPHINE SULFATE EXTENDED RELEASE [Concomitant]
     Active Substance: MORPHINE SULFATE
  10. DILAUDID [Concomitant]
     Active Substance: HYDROMORPHONE HYDROCHLORIDE
  11. CYMBALTA [Concomitant]
     Active Substance: DULOXETINE HYDROCHLORIDE

REACTIONS (2)
  - Facial pain [None]
  - Muscle spasms [None]

NARRATIVE: CASE EVENT DATE: 20200214
